FAERS Safety Report 4825872-8 (Version None)
Quarter: 2005Q4

REPORT INFORMATION
  Report Type: 
  Country: None (occurrence: None)
  Receive Date: 20051109
  Receipt Date: 20040429
  Transmission Date: 20060501
  Serious: Yes (Hospitalization)
  Sender: FDA-Public Use
  Company Number: A-US2004-10854

PATIENT
  Age: 70 Year
  Sex: Male

DRUGS (4)
  1. TRACLEER [Suspect]
     Indication: PULMONARY HYPERTENSION
     Dosage: 125 MG, BID, ORAL; 62.5 MG, QD, ORAL; 62.5 MG, BID, ORAL
     Route: 048
     Dates: start: 20020212, end: 20020410
  2. TRACLEER [Suspect]
     Indication: PULMONARY HYPERTENSION
     Dosage: 125 MG, BID, ORAL; 62.5 MG, QD, ORAL; 62.5 MG, BID, ORAL
     Route: 048
     Dates: start: 20020411, end: 20030212
  3. TRACLEER [Suspect]
     Indication: PULMONARY HYPERTENSION
     Dosage: 125 MG, BID, ORAL; 62.5 MG, QD, ORAL; 62.5 MG, BID, ORAL
     Route: 048
     Dates: start: 20030213, end: 20031211
  4. HEPARIN [Suspect]

REACTIONS (3)
  - ACTIVATED PARTIAL THROMBOPLASTIN TIME PROLONGED [None]
  - GINGIVAL BLEEDING [None]
  - HAEMATOCRIT DECREASED [None]
